FAERS Safety Report 7270686-5 (Version None)
Quarter: 2011Q1

REPORT INFORMATION
  Report Type: 
  Country: None (occurrence: None)
  Receive Date: 20110202
  Receipt Date: 20110125
  Transmission Date: 20110831
  Serious: Yes (Other)
  Sender: FDA-Public Use
  Company Number: B0686879A

PATIENT
  Sex: Male
  Weight: 85 kg

DRUGS (2)
  1. AVODART [Suspect]
     Indication: BENIGN PROSTATIC HYPERPLASIA
     Dosage: .5MG PER DAY
     Route: 048
  2. LISINOPRIL [Concomitant]
     Indication: HYPERTENSION

REACTIONS (5)
  - EJACULATION DISORDER [None]
  - SEPSIS [None]
  - OEDEMA PERIPHERAL [None]
  - GYNAECOMASTIA [None]
  - TRANSMISSION OF AN INFECTIOUS AGENT VIA A MEDICINAL PRODUCT [None]
